FAERS Safety Report 8191350-4 (Version None)
Quarter: 2012Q1

REPORT INFORMATION
  Report Type: 
  Country: None (occurrence: None)
  Receive Date: 20120307
  Receipt Date: 20120224
  Transmission Date: 20120608
  Serious: Yes (Other)
  Sender: FDA-Public Use
  Company Number: US-ELI_LILLY_AND_COMPANY-US201202008342

PATIENT
  Sex: Male

DRUGS (3)
  1. HUMALOG [Suspect]
     Dosage: UNK UNK, TID
  2. HUMALOG [Suspect]
     Dosage: UNK, TID
  3. HUMALOG [Suspect]
     Dosage: UNK, TID

REACTIONS (2)
  - FOOT AMPUTATION [None]
  - VASCULAR GRAFT [None]
